FAERS Safety Report 11159612 (Version 1)
Quarter: 2015Q2

REPORT INFORMATION
  Report Type: Spontaneous
  Country: US (occurrence: US)
  Receive Date: 20150603
  Receipt Date: 20150603
  Transmission Date: 20150821
  Serious: No
  Sender: FDA-Public Use
  Company Number: US-ABBVIE-14P-163-1294257-00

PATIENT
  Age: 26 Year
  Sex: Male
  Weight: 86.26 kg

DRUGS (6)
  1. TENEX [Concomitant]
     Active Substance: GUANFACINE HYDROCHLORIDE
     Indication: ANXIETY
  2. LEXAPRO [Concomitant]
     Active Substance: ESCITALOPRAM OXALATE
     Indication: ANXIETY
  3. LEXAPRO [Concomitant]
     Active Substance: ESCITALOPRAM OXALATE
     Indication: AUTISM
  4. RISPERDAL [Concomitant]
     Active Substance: RISPERIDONE
     Indication: ANXIETY
  5. MARINOL [Suspect]
     Active Substance: DRONABINOL
     Indication: POST-TRAUMATIC STRESS DISORDER
     Route: 048
     Dates: start: 201409
  6. MARINOL [Suspect]
     Active Substance: DRONABINOL
     Indication: AUTISM

REACTIONS (5)
  - Agitation [Not Recovered/Not Resolved]
  - Drug effect incomplete [Not Recovered/Not Resolved]
  - Personality change [Not Recovered/Not Resolved]
  - Off label use [Unknown]
  - Refusal of treatment by patient [Not Recovered/Not Resolved]

NARRATIVE: CASE EVENT DATE: 201409
